FAERS Safety Report 6831940-1 (Version None)
Quarter: 2010Q3

REPORT INFORMATION
  Report Type: 
  Country: None (occurrence: None)
  Receive Date: 20100712
  Receipt Date: 20100630
  Transmission Date: 20110219
  Serious: Yes (Death, Life-Threatening)
  Sender: FDA-Public Use
  Company Number: JP-PFIZER INC-2010081927

PATIENT
  Age: 3 Week
  Sex: Female
  Weight: 1.874 kg

DRUGS (17)
  1. SILDENAFIL CITRATE [Suspect]
     Indication: PULMONARY HYPERTENSION
     Dosage: UNK
     Route: 048
     Dates: start: 20090307, end: 20090310
  2. SILDENAFIL CITRATE [Suspect]
     Indication: RESPIRATORY DISORDER
     Dosage: UNK
     Route: 048
     Dates: start: 20090310, end: 20090310
  3. SILDENAFIL CITRATE [Suspect]
     Dosage: UNK
     Route: 048
     Dates: start: 20090313, end: 20090314
  4. SILDENAFIL CITRATE [Suspect]
     Dosage: 0.5 MG, 3X/DAY
     Route: 048
     Dates: start: 20090314, end: 20090315
  5. SILDENAFIL CITRATE [Suspect]
     Dosage: 0.5 MG, 4X/DAY
     Route: 048
     Dates: start: 20090315, end: 20090410
  6. DORNER [Concomitant]
     Dosage: UNK
     Route: 048
     Dates: start: 20090308
  7. TRACLEER [Concomitant]
     Dosage: UNK
     Route: 048
     Dates: start: 20090314
  8. BOSMIN [Concomitant]
     Dosage: UNK
     Route: 042
  9. MIDAZOLAM HCL [Concomitant]
     Dosage: UNK
     Route: 042
  10. FENTANYL [Concomitant]
     Dosage: UNK
     Route: 042
  11. MANNITOL [Concomitant]
     Dosage: UNK
     Route: 042
     Dates: end: 20090308
  12. LASIX [Concomitant]
     Dosage: UNK
     Route: 042
     Dates: end: 20090308
  13. INOVAN [Concomitant]
     Dosage: UNK
     Route: 042
     Dates: end: 20090402
  14. FLOLAN [Concomitant]
     Indication: PULMONARY HYPERTENSION
     Dosage: UNK
     Route: 042
     Dates: start: 20090217, end: 20090308
  15. RASENAZOLIN [Concomitant]
     Dosage: UNK
     Route: 042
     Dates: end: 20090311
  16. MEYLON [Concomitant]
     Dosage: UNK
     Route: 042
     Dates: end: 20090310
  17. WAKOBITAL [Concomitant]
     Dosage: UNK
     Route: 054
     Dates: end: 20090323

REACTIONS (4)
  - HYPOTENSION [None]
  - PNEUMOTHORAX [None]
  - RENAL FAILURE [None]
  - SEPSIS [None]
